FAERS Safety Report 5254746-6 (Version None)
Quarter: 2007Q1

REPORT INFORMATION
  Report Type: 
  Country: None (occurrence: None)
  Receive Date: 20070228
  Receipt Date: 20070213
  Transmission Date: 20070707
  Serious: Yes (Hospitalization)
  Sender: FDA-Public Use
  Company Number: 2007SP000513

PATIENT
  Age: 61 Year
  Sex: Female
  Weight: 77.5651 kg

DRUGS (6)
  1. XOPENEX [Suspect]
     Indication: CHRONIC OBSTRUCTIVE PULMONARY DISEASE
     Dosage: INHALATION
     Route: 055
     Dates: start: 20070101
  2. SIMVASTATIN [Concomitant]
  3. WARFARIN SODIUM [Concomitant]
  4. SOTALOL HYDROCHLORIDE [Concomitant]
  5. ASPIRIN [Concomitant]
  6. VITAMIN CAP [Concomitant]

REACTIONS (6)
  - ATRIAL FIBRILLATION [None]
  - ATRIOVENTRICULAR BLOCK [None]
  - BUNDLE BRANCH BLOCK RIGHT [None]
  - CHRONIC OBSTRUCTIVE PULMONARY DISEASE [None]
  - ELECTROCARDIOGRAM QT CORRECTED INTERVAL PROLONGED [None]
  - PHARYNGOLARYNGEAL PAIN [None]
